FAERS Safety Report 22525888 (Version 6)
Quarter: 2023Q4

REPORT INFORMATION
  Report Type: Spontaneous
  Country: US (occurrence: US)
  Receive Date: 20230606
  Receipt Date: 20231127
  Transmission Date: 20240110
  Serious: Yes (Other)
  Sender: FDA-Public Use
  Company Number: US-BRISTOL-MYERS SQUIBB COMPANY-2023-079482

PATIENT
  Age: 62 Year
  Sex: Female

DRUGS (18)
  1. REVLIMID [Suspect]
     Active Substance: LENALIDOMIDE
     Indication: Plasma cell myeloma in remission
     Dosage: TAKE ONE CAPSULE BY MOUTH DAILY. TAKE AT SAME TIME EVERY DAY
     Route: 048
     Dates: start: 20230221, end: 20231010
  2. REVLIMID [Suspect]
     Active Substance: LENALIDOMIDE
     Indication: Plasma cell myeloma
     Dosage: TAKE ONE CAPSULE BY MOUTH DAILY. TAKE AT SAME TIME EVERY DAY
     Route: 048
     Dates: start: 20230308, end: 20230621
  3. REVLIMID [Suspect]
     Active Substance: LENALIDOMIDE
     Indication: Stem cell transplant
     Dosage: PRIOR TO BONE MARROW TRANSPLANT ON 05-OCT-2022
  4. REVLIMID [Suspect]
     Active Substance: LENALIDOMIDE
     Dosage: QD FOR 21 DAYS ON THEN 7 DAYS OFF
     Route: 048
  5. ASPIRIN [Concomitant]
     Active Substance: ASPIRIN
     Indication: Product used for unknown indication
     Dosage: CHEW ONE TABLET BY MOUTH DAILY. TAKE WITH FOOD
     Route: 048
  6. ZOVIRAX [Concomitant]
     Active Substance: ACYCLOVIR
     Indication: Product used for unknown indication
     Dosage: 1 TABLET BY MOUTH TWICE DAILY
     Route: 048
  7. LIPITOR [Concomitant]
     Active Substance: ATORVASTATIN CALCIUM
     Indication: Product used for unknown indication
     Dosage: TAKE BY MOUTH DAILY. HOLD DURING TRANSPLANT
     Route: 048
  8. NORCO [Concomitant]
     Active Substance: ACETAMINOPHEN\HYDROCODONE BITARTRATE
     Indication: Product used for unknown indication
     Dosage: 5/325 MG TABLET. TAKE ONE TABLET TO TWO TABLETS BY MOUTH EVERY 4 HOURS AS PER NEEDED FOR PAIN. HOLD
     Route: 048
  9. LORATADINE [Concomitant]
     Active Substance: LORATADINE
     Indication: Product used for unknown indication
     Dosage: TAKE ONE TABLET BY MOUTH EVERY MORNING.
     Route: 048
  10. PRILOSEC [Concomitant]
     Active Substance: OMEPRAZOLE MAGNESIUM
     Indication: Product used for unknown indication
     Dosage: TAKE ONE CAPSULE BY MOUTH EVERY 24 HRS AS NEEDED
     Route: 048
  11. ZYRTEC [Concomitant]
     Active Substance: CETIRIZINE HYDROCHLORIDE
     Indication: Product used for unknown indication
     Route: 048
  12. NIZORAL [Concomitant]
     Active Substance: KETOCONAZOLE
     Indication: Product used for unknown indication
     Dosage: APPLY TO THE AFFECTED AREA
     Route: 061
  13. MAGOX [Concomitant]
     Indication: Product used for unknown indication
     Route: 048
  14. MAGOX [Concomitant]
     Dosage: HS
  15. MELATONIN [Concomitant]
     Active Substance: MELATONIN
     Indication: Product used for unknown indication
     Dosage: AT BEDTIME DAILY
     Route: 048
  16. VITAMINS NOS [Concomitant]
     Active Substance: VITAMINS
     Indication: Product used for unknown indication
     Route: 048
  17. BACTROBAN [Concomitant]
     Active Substance: MUPIROCIN CALCIUM
     Indication: Product used for unknown indication
     Route: 061
  18. RETIN-A [Concomitant]
     Active Substance: TRETINOIN
     Indication: Product used for unknown indication
     Dosage: APPLY A PEA SIZED AMOUNT TO ENTIRE FACE AT BEDTIME. BEGIN USING 2-3 TIMES PER WEEK, THEN INCREASE TO
     Route: 061

REACTIONS (4)
  - Muscle spasms [Recovered/Resolved]
  - Neutropenia [Recovering/Resolving]
  - White blood cell count decreased [Unknown]
  - Cataract [Unknown]

NARRATIVE: CASE EVENT DATE: 20230522
